FAERS Safety Report 6322599-0 (Version None)
Quarter: 2009Q3

REPORT INFORMATION
  Report Type: 
  Country: None (occurrence: None)
  Receive Date: 20090824
  Receipt Date: 20090303
  Transmission Date: 20100115
  Serious: No
  Sender: FDA-Public Use
  Company Number: US-ABBOTT-09P-163-0560175-00

PATIENT
  Sex: Male

DRUGS (6)
  1. NIASPAN [Suspect]
     Indication: BLOOD CHOLESTEROL INCREASED
     Dates: start: 20030101
  2. SIMCOR [Suspect]
     Indication: BLOOD CHOLESTEROL INCREASED
     Dosage: 1000/20 MG TAKEN AT BEDTIME
  3. BLOOD PRESSURE MEDICATION [Concomitant]
     Indication: DRUG USE FOR UNKNOWN INDICATION
  4. ASPIRIN [Concomitant]
     Indication: DRUG USE FOR UNKNOWN INDICATION
  5. MELOXICAM [Concomitant]
     Indication: DRUG USE FOR UNKNOWN INDICATION
  6. MVT [Concomitant]
     Indication: DRUG USE FOR UNKNOWN INDICATION

REACTIONS (1)
  - FLUSHING [None]
